FAERS Safety Report 5031830-3 (Version None)
Quarter: 2006Q2

REPORT INFORMATION
  Report Type: 
  Country: None (occurrence: None)
  Receive Date: 20060619
  Receipt Date: 20060608
  Transmission Date: 20061013
  Serious: Yes (Other)
  Sender: FDA-Public Use
  Company Number: 110069ISR

PATIENT
  Age: 33 Year
  Sex: Female

DRUGS (4)
  1. GLATIRAMER ACETATE [Suspect]
     Indication: MULTIPLE SCLEROSIS
     Dosage: 20 MILLIGRAM
     Route: 058
     Dates: start: 20050701
  2. MIRTAZAPINE [Concomitant]
  3. LOFEPRAMINE [Concomitant]
  4. SETRALINE HCL [Concomitant]

REACTIONS (1)
  - BIPOLAR DISORDER [None]
